FAERS Safety Report 20393389 (Version 3)
Quarter: 2022Q2

REPORT INFORMATION
  Report Type: Report from Study
  Country: CN (occurrence: CN)
  Receive Date: 20220128
  Receipt Date: 20220425
  Transmission Date: 20220721
  Serious: Yes (Hospitalization, Other)
  Sender: FDA-Public Use
  Company Number: CN-AstrazenecaRSG-1304-D9676C00002(Prod)000002

PATIENT
  Age: 39 Year
  Sex: Female
  Weight: 48 kg

DRUGS (15)
  1. TRASTUZUMAB DERUXTECAN [Suspect]
     Active Substance: TRASTUZUMAB DERUXTECAN
     Indication: Gastric cancer
     Dosage: 6.4 MG/KG
     Route: 042
     Dates: start: 20211112, end: 20211112
  2. SOMATOSTATIN [Concomitant]
     Active Substance: SOMATOSTATIN
     Indication: Pancreatitis
     Route: 042
     Dates: start: 20211030
  3. SOMATOSTATIN [Concomitant]
     Active Substance: SOMATOSTATIN
     Route: 042
     Dates: start: 20211104, end: 20211104
  4. PANTOPRAZOLE SODIUM [Concomitant]
     Active Substance: PANTOPRAZOLE SODIUM
     Indication: Prophylaxis
     Dosage: 40 MG
     Route: 042
     Dates: start: 20211030
  5. OMEPRAZOLE SODIUM [Concomitant]
     Active Substance: OMEPRAZOLE SODIUM
     Indication: Prophylaxis
     Dosage: 40 MG
     Route: 042
     Dates: start: 20211110, end: 20211113
  6. OMEPRAZOLE SODIUM [Concomitant]
     Active Substance: OMEPRAZOLE SODIUM
     Dosage: 40 MG
     Route: 042
     Dates: start: 20211127, end: 20211228
  7. PROTAMINE ZINC RECOMBINANT HUMAN INSULIN [Concomitant]
     Indication: Nutritional supplementation
     Route: 042
     Dates: start: 20211110, end: 20211113
  8. REDUCED GLUTATHIONE [Concomitant]
     Indication: Prophylaxis
     Dosage: 2 G
     Route: 042
     Dates: start: 20211111, end: 20211113
  9. ITOPRIDE HYDROCHLORIDE [Concomitant]
     Active Substance: ITOPRIDE HYDROCHLORIDE
     Indication: Prophylaxis
     Dosage: 1 DF
     Route: 048
     Dates: start: 20211111, end: 20211113
  10. OXYCODONE HYDROCHLORIDE [Concomitant]
     Active Substance: OXYCODONE HYDROCHLORIDE
     Indication: Pain
     Dosage: 10 MG
     Route: 048
     Dates: start: 20211104, end: 20211112
  11. OXYCODONE HYDROCHLORIDE [Concomitant]
     Active Substance: OXYCODONE HYDROCHLORIDE
     Dosage: 10 MG
     Route: 048
     Dates: start: 20211111, end: 20211113
  12. LACTULOSE [Concomitant]
     Active Substance: LACTULOSE
     Indication: Constipation prophylaxis
     Dosage: 15 ML
     Route: 048
     Dates: start: 20211111, end: 20211113
  13. ZOLEDRONIC ACID [Concomitant]
     Active Substance: ZOLEDRONIC ACID
     Indication: Pain
     Dosage: 4 MG
     Route: 042
     Dates: start: 20211113, end: 20211113
  14. DEXAMETHASONE SODIUM PHOSPHATE [Concomitant]
     Active Substance: DEXAMETHASONE SODIUM PHOSPHATE
     Indication: Vomiting
     Dosage: 5 MG
     Route: 042
     Dates: start: 20211112, end: 20211112
  15. DEXAMETHASONE SODIUM PHOSPHATE [Concomitant]
     Active Substance: DEXAMETHASONE SODIUM PHOSPHATE
     Dosage: 2 MG
     Route: 042
     Dates: start: 20211113, end: 20211113

REACTIONS (2)
  - Hepatic function abnormal [Recovered/Resolved]
  - Drug-induced liver injury [Recovered/Resolved]

NARRATIVE: CASE EVENT DATE: 20211126
